FAERS Safety Report 15640057 (Version 1)
Quarter: 2018Q4

REPORT INFORMATION
  Report Type: Report from Study
  Country: IT (occurrence: IT)
  Receive Date: 20181120
  Receipt Date: 20181120
  Transmission Date: 20190205
  Serious: Yes (Other)
  Sender: FDA-Public Use
  Company Number: PHHY2018IT127417

PATIENT
  Age: 62 Year
  Sex: Female

DRUGS (3)
  1. COSENTYX [Suspect]
     Active Substance: SECUKINUMAB
     Indication: PRODUCT USED FOR UNKNOWN INDICATION
     Dosage: 300 MG, QW
     Route: 065
     Dates: start: 20180924
  2. COSENTYX [Suspect]
     Active Substance: SECUKINUMAB
     Dosage: 300 MG, QW
     Route: 065
     Dates: start: 20181008
  3. COSENTYX [Suspect]
     Active Substance: SECUKINUMAB
     Dosage: 300 MG EVERY 28 DAYS
     Route: 065

REACTIONS (12)
  - Somnolence [Not Recovered/Not Resolved]
  - Injection site mass [Unknown]
  - Injection site bruising [Unknown]
  - Rhinorrhoea [Unknown]
  - Skin depigmentation [Not Recovered/Not Resolved]
  - Cough [Unknown]
  - Pyrexia [Unknown]
  - Injection site haemorrhage [Recovered/Resolved]
  - Injection site thrombosis [Unknown]
  - Pruritus [Recovering/Resolving]
  - Injection site haemorrhage [Recovered/Resolved]
  - Influenza [Unknown]

NARRATIVE: CASE EVENT DATE: 20181008
